FAERS Safety Report 9733608 (Version 3)
Quarter: 2014Q1

REPORT INFORMATION
  Report Type: Report from Study
  Country: US (occurrence: US)
  Receive Date: 20131205
  Receipt Date: 20140306
  Transmission Date: 20141002
  Serious: Yes (Hospitalization)
  Sender: FDA-Public Use
  Company Number: US-GLAXOSMITHKLINE-Z0021614B

PATIENT
  Age: 53 Year
  Sex: Female
  Weight: 87.3 kg

DRUGS (3)
  1. LAPATINIB [Suspect]
     Indication: BREAST CANCER METASTATIC
     Dosage: 1000MG PER DAY
     Route: 048
     Dates: start: 20131113
  2. TRASTUZUMAB [Suspect]
     Indication: BREAST CANCER METASTATIC
     Dosage: 6MGK EVERY 3 WEEKS
     Route: 042
     Dates: start: 20131111
  3. ANASTROZOLE [Suspect]
     Indication: BREAST CANCER METASTATIC
     Dosage: 1MG PER DAY
     Dates: start: 20131111

REACTIONS (2)
  - Diarrhoea [Recovered/Resolved]
  - Hypokalaemia [Recovered/Resolved]
